FAERS Safety Report 4285882-9 (Version None)
Quarter: 2004Q1

REPORT INFORMATION
  Report Type: 
  Country: None (occurrence: None)
  Receive Date: 20040203
  Receipt Date: 20040128
  Transmission Date: 20041129
  Serious: Yes (Death, Hospitalization)
  Sender: FDA-Public Use
  Company Number: STA-AE-04-MTX-035

PATIENT
  Age: 61 Year
  Sex: Female

DRUGS (5)
  1. RHEUMATREX [Suspect]
     Indication: RHEUMATOID ARTHRITIS
     Dosage: 6 MG 1X PER 1 WK, ORAL
     Route: 048
     Dates: start: 20010820
  2. LOXONIN (LOXOPROFEN SODIUM) [Concomitant]
  3. ROCALTROL [Concomitant]
  4. ASPARA K (ASPARTATE POTASSIUM) [Concomitant]
  5. RIMATIL (BUCILLAMINE) [Concomitant]

REACTIONS (4)
  - ACUTE RESPIRATORY DISTRESS SYNDROME [None]
  - ACUTE RESPIRATORY FAILURE [None]
  - PANCYTOPENIA [None]
  - PNEUMONIA [None]
